FAERS Safety Report 9829977 (Version 1)
Quarter: 2014Q1

REPORT INFORMATION
  Report Type: Spontaneous
  Country: US (occurrence: US)
  Receive Date: 20140120
  Receipt Date: 20140120
  Transmission Date: 20141002
  Serious: Yes (Hospitalization, Other)
  Sender: FDA-Public Use
  Company Number: US-ELI_LILLY_AND_COMPANY-US201401003980

PATIENT
  Age: 73 Year
  Sex: Female

DRUGS (5)
  1. CYMBALTA [Suspect]
     Indication: BIPOLAR DISORDER
     Dosage: 90 MG, QD
     Route: 065
  2. ABILIFY [Concomitant]
  3. BUPROPION [Concomitant]
  4. LAMOTRIGINE [Concomitant]
  5. PRIMIDONE [Concomitant]
     Indication: TREMOR

REACTIONS (9)
  - Cerebrovascular accident [Unknown]
  - Weight decreased [Unknown]
  - Off label use [Unknown]
  - Illusion [Unknown]
  - Decubitus ulcer [Unknown]
  - Muscle rigidity [Unknown]
  - Hallucination [Unknown]
  - Confusional state [Unknown]
  - Visual impairment [Unknown]
